FAERS Safety Report 5411686-7 (Version None)
Quarter: 2007Q3

REPORT INFORMATION
  Report Type: 
  Country: None (occurrence: None)
  Receive Date: 20070810
  Receipt Date: 20070802
  Transmission Date: 20080115
  Serious: Yes (Other)
  Sender: FDA-Public Use
  Company Number: BR-PFIZER INC-2007065170

PATIENT
  Age: 54 Year
  Sex: Female
  Weight: 105 kg

DRUGS (1)
  1. DETRUSITOL [Suspect]
     Indication: URINARY INCONTINENCE
     Route: 048

REACTIONS (1)
  - EPISTAXIS [None]
